FAERS Safety Report 12611781 (Version 3)
Quarter: 2018Q3

REPORT INFORMATION
  Report Type: Spontaneous
  Country: US (occurrence: US)
  Receive Date: 20160801
  Receipt Date: 20180803
  Transmission Date: 20181010
  Serious: No
  Sender: FDA-Public Use
  Company Number: US-ASTRAZENECA-2016SE46221

PATIENT
  Sex: Female
  Weight: 63 kg

DRUGS (6)
  1. BYDUREON BCISE [Suspect]
     Active Substance: EXENATIDE
     Indication: TYPE 1 DIABETES MELLITUS
     Route: 058
  2. BYDUREON [Suspect]
     Active Substance: EXENATIDE
     Indication: TYPE 1 DIABETES MELLITUS
     Route: 058
     Dates: start: 201601
  3. TYLENOL [Concomitant]
     Active Substance: ACETAMINOPHEN
  4. AMLODIPINE BENZAPRIL [Concomitant]
     Active Substance: AMLODIPINE BESYLATE\BENAZEPRIL HYDROCHLORIDE
     Indication: HYPERTENSION
     Dosage: 10?20 MG EVERY DAY
     Route: 048
  5. BYDUREON [Suspect]
     Active Substance: EXENATIDE
     Indication: TYPE 2 DIABETES MELLITUS
     Route: 058
     Dates: start: 201601
  6. INSULIN [Concomitant]
     Active Substance: INSULIN NOS

REACTIONS (14)
  - Off label use [Unknown]
  - Drug ineffective [Unknown]
  - Scar [Unknown]
  - Device malfunction [Unknown]
  - Product use in unapproved indication [Unknown]
  - Nausea [Unknown]
  - Blood glucose decreased [Unknown]
  - Injection site pain [Unknown]
  - Injection site scab [Unknown]
  - Parkinson^s disease [Unknown]
  - Injection site erythema [Unknown]
  - Malaise [Unknown]
  - Abdominal discomfort [Unknown]
  - Diarrhoea [Unknown]
